FAERS Safety Report 9123822 (Version 1)
Quarter: 2013Q1

REPORT INFORMATION
  Report Type: Spontaneous
  Country: NL (occurrence: NL)
  Receive Date: 20130116
  Receipt Date: 20130116
  Transmission Date: 20140127
  Serious: Yes (Other)
  Sender: FDA-Public Use
  Company Number: NL-PFIZER INC-2012293757

PATIENT
  Age: 69 Year
  Sex: Male

DRUGS (4)
  1. LIPITOR [Suspect]
     Indication: DIABETES MELLITUS
     Dosage: 20 MG, 1X/DAY
     Dates: start: 20060609
  2. VALSARTAN [Concomitant]
  3. AMLODIPINE [Concomitant]
  4. METFORMIN [Concomitant]

REACTIONS (2)
  - Hepatic steatosis [Unknown]
  - Gallbladder polyp [Unknown]
